FAERS Safety Report 12694442 (Version 2)
Quarter: 2016Q3

REPORT INFORMATION
  Report Type: Report from Study
  Country: US (occurrence: US)
  Receive Date: 20160829
  Receipt Date: 20160912
  Transmission Date: 20161109
  Serious: Yes (Hospitalization)
  Sender: FDA-Public Use
  Company Number: US-ACTELION-A-US2015-111298

PATIENT
  Age: 72 Year
  Sex: Male

DRUGS (3)
  1. ADCIRCA [Concomitant]
     Active Substance: TADALAFIL
  2. WARFARIN [Concomitant]
     Active Substance: WARFARIN
  3. OPSUMIT [Suspect]
     Active Substance: MACITENTAN
     Indication: PULMONARY ARTERIAL HYPERTENSION
     Dosage: 10 MG, QD
     Route: 048
     Dates: start: 20140417

REACTIONS (11)
  - Atrial fibrillation [Recovered/Resolved]
  - Oedema [Unknown]
  - Urinary tract infection [Unknown]
  - Cardioversion [Unknown]
  - Swelling [Unknown]
  - Fluid retention [Unknown]
  - Cardiac failure congestive [Unknown]
  - Panic attack [Unknown]
  - Heart rate increased [Unknown]
  - Dyspnoea [Unknown]
  - Pneumonia [Unknown]

NARRATIVE: CASE EVENT DATE: 20141224
